FAERS Safety Report 7737119-3 (Version None)
Quarter: 2011Q3

REPORT INFORMATION
  Report Type: 
  Country: None (occurrence: None)
  Receive Date: 20110908
  Receipt Date: 20110902
  Transmission Date: 20111222
  Serious: Yes (Hospitalization)
  Sender: FDA-Public Use
  Company Number: US-ROCHE-793585

PATIENT
  Sex: Male

DRUGS (1)
  1. VALCYTE [Suspect]
     Route: 065

REACTIONS (2)
  - INFECTIOUS PERITONITIS [None]
  - MALAISE [None]
